FAERS Safety Report 22049276 (Version 1)
Quarter: 2023Q1

REPORT INFORMATION
  Report Type: Spontaneous
  Country: US (occurrence: None)
  Receive Date: 20230228
  Receipt Date: 20230228
  Transmission Date: 20230418
  Serious: Yes (Life-Threatening, Disabling)
  Sender: FDA-Public Use
  Company Number: None

PATIENT
  Age: 70 Year
  Sex: Female
  Weight: 57.6 kg

DRUGS (4)
  1. LORAZEPAM [Suspect]
     Active Substance: LORAZEPAM
     Indication: Anxiety
     Dosage: OTHER QUANTITY : 0.5 TABLET(S);?FREQUENCY : AS NEEDED;?
     Route: 048
  2. VITAMIN C [Concomitant]
     Active Substance: ASCORBIC ACID
  3. VITAMIN D [Concomitant]
     Active Substance: VITAMIN D NOS
  4. MAGNESIUM [Concomitant]

REACTIONS (5)
  - Crying [None]
  - Neuralgia [None]
  - Muscle rigidity [None]
  - Gastrointestinal disorder [None]
  - Feeling abnormal [None]

NARRATIVE: CASE EVENT DATE: 20200901
